FAERS Safety Report 9905563 (Version 1)
Quarter: 2013Q2

REPORT INFORMATION
  Report Type: Spontaneous
  Country: US (occurrence: None)
  Receive Date: 20130305
  Receipt Date: 20130305
  Transmission Date: 20140414
  Serious: Yes (Other)
  Sender: FDA-Public Use
  Company Number: 163-21880-12041667

PATIENT
  Age: 81 Year
  Sex: Female
  Weight: 74.84 kg

DRUGS (1)
  1. REVLIMID (LENALIDOMIDE) (10 MILLIGRAM, CAPSULES) [Suspect]
     Indication: PLASMA CELL MYELOMA
     Dosage: 10 MG, DAILY X 7 DAYS AND 7 DAYS OFF, PO
     Route: 048
     Dates: start: 20110117

REACTIONS (2)
  - Diarrhoea [None]
  - Dehydration [None]
